FAERS Safety Report 6193969-9 (Version None)
Quarter: 2009Q2

REPORT INFORMATION
  Report Type: 
  Country: None (occurrence: None)
  Receive Date: 20090512
  Receipt Date: 20090428
  Transmission Date: 20091009
  Serious: Yes (Death, Hospitalization)
  Sender: FDA-Public Use
  Company Number: B0573102A

PATIENT
  Age: 88 Year
  Sex: Male

DRUGS (5)
  1. PHENOXYMETHYLPENICILLIN [Suspect]
     Indication: PNEUMONIA PNEUMOCOCCAL
  2. AMOXICILLIN AND CLAVULANATE POTASSIUM [Suspect]
     Indication: PNEUMONIA PNEUMOCOCCAL
  3. CEFOTAXIME [Suspect]
     Indication: PNEUMONIA PNEUMOCOCCAL
  4. ERYTHROMYCIN [Suspect]
     Indication: PNEUMONIA PNEUMOCOCCAL
  5. CLINDAMYCIN HCL [Suspect]
     Indication: PNEUMONIA PNEUMOCOCCAL

REACTIONS (2)
  - DRUG RESISTANCE [None]
  - TREATMENT FAILURE [None]
